FAERS Safety Report 9576965 (Version 1)
Quarter: 2013Q4

REPORT INFORMATION
  Report Type: Spontaneous
  Country: US (occurrence: US)
  Receive Date: 20131001
  Receipt Date: 20131001
  Transmission Date: 20140711
  Serious: No
  Sender: FDA-Public Use
  Company Number: US-AMGEN-USASP2013005490

PATIENT
  Age: 49 Year
  Sex: Female
  Weight: 80.27 kg

DRUGS (18)
  1. ENBREL [Suspect]
     Indication: PSORIATIC ARTHROPATHY
     Dosage: 50 MG, QWK
     Route: 058
     Dates: end: 20121223
  2. CYMBALTA [Concomitant]
     Dosage: 30 MG, UNK
  3. SINGULAIR [Concomitant]
     Dosage: 10 MG, UNK
  4. OXYCODONE/APAP                     /01601701/ [Concomitant]
     Dosage: 5-500 MG
  5. LIPITOR [Concomitant]
     Dosage: 20 MG, UNK
  6. CARVEDILOL [Concomitant]
     Dosage: 25 MG, UNK
  7. GABAPENTIN [Concomitant]
     Dosage: 100 MG, UNK
  8. VITAMIN D                          /00107901/ [Concomitant]
     Dosage: 400 UNIT, UNK
  9. FISH OIL [Concomitant]
     Dosage: UNK
  10. CALCIUM [Concomitant]
     Dosage: 500 UNK, UNK
  11. CALCIPOTRIENE [Concomitant]
     Dosage: 0.005 %, UNK
  12. FLOVENT [Concomitant]
     Dosage: 110 MCG
  13. PROAIR HFA [Concomitant]
     Dosage: UNK
  14. MAGNESIUM [Concomitant]
     Dosage: 200 MG, UNK
  15. METFORMIN [Concomitant]
     Dosage: 500 MG, UNK
  16. OMEPRAZOLE [Concomitant]
     Dosage: 20 MG, UNK
  17. ADVAIR [Concomitant]
     Dosage: 100/50
  18. LISINOPRIL [Concomitant]
     Dosage: 30 MG, UNK

REACTIONS (6)
  - Drug ineffective [Unknown]
  - Phlebectomy [Unknown]
  - Rash pustular [Unknown]
  - Psoriasis [Unknown]
  - Urinary tract infection [Unknown]
  - Dizziness [Unknown]
